FAERS Safety Report 22057788 (Version 1)
Quarter: 2023Q1

REPORT INFORMATION
  Report Type: Spontaneous
  Country: US (occurrence: US)
  Receive Date: 20230303
  Receipt Date: 20230303
  Transmission Date: 20230418
  Serious: Yes (Other)
  Sender: FDA-Public Use
  Company Number: US-BRISTOL-MYERS SQUIBB COMPANY-2023-031180

PATIENT
  Age: 69 Year
  Sex: Female

DRUGS (2)
  1. APIXABAN [Suspect]
     Active Substance: APIXABAN
     Indication: Deep vein thrombosis
  2. APIXABAN [Suspect]
     Active Substance: APIXABAN

REACTIONS (3)
  - Subdural haematoma [Unknown]
  - Anticoagulation drug level above therapeutic [Unknown]
  - Intentional product use issue [Unknown]
